FAERS Safety Report 7025557-6 (Version None)
Quarter: 2010Q4

REPORT INFORMATION
  Report Type: 
  Country: None (occurrence: None)
  Receive Date: 20101003
  Receipt Date: 20100924
  Transmission Date: 20110411
  Serious: Yes (Hospitalization, Other)
  Sender: FDA-Public Use
  Company Number: PHHY2008CA21487

PATIENT
  Sex: Female

DRUGS (2)
  1. SANDOSTATIN LAR [Suspect]
     Indication: NEUROENDOCRINE TUMOUR
     Dosage: 30 MG, QMO
     Route: 030
     Dates: start: 20070924
  2. SANDOSTATIN LAR [Suspect]
     Dosage: 40 MG, QMO
     Route: 030

REACTIONS (7)
  - ABDOMINAL PAIN [None]
  - BILE DUCT OBSTRUCTION [None]
  - DIABETES MELLITUS [None]
  - ENTEROCOCCUS TEST POSITIVE [None]
  - INFECTION [None]
  - LIVER DISORDER [None]
  - PYREXIA [None]
